FAERS Safety Report 6715893-2 (Version None)
Quarter: 2010Q2

REPORT INFORMATION
  Report Type: 
  Country: None (occurrence: None)
  Receive Date: 20100507
  Receipt Date: 20100428
  Transmission Date: 20101027
  Serious: Yes (Other)
  Sender: FDA-Public Use
  Company Number: FI-AMGEN-QUU409215

PATIENT
  Sex: Female

DRUGS (12)
  1. NEULASTA [Suspect]
     Indication: CHEMOTHERAPY
  2. DOCETAXEL [Concomitant]
  3. ZOMETA [Concomitant]
     Route: 042
  4. DEXAMETHASONE [Concomitant]
  5. KYTRIL [Concomitant]
  6. CETRIZIN [Concomitant]
  7. PRIMPERAN TAB [Concomitant]
  8. UNSPECIFIED MEDICATION [Concomitant]
  9. RAMIPRIL [Concomitant]
  10. CALCICHEW-D3 [Concomitant]
  11. PANADOL [Concomitant]
  12. IBUPROFEN [Concomitant]

REACTIONS (4)
  - DRUG ERUPTION [None]
  - ERYTHEMA OF EYELID [None]
  - PRURITUS [None]
  - RASH [None]
